FAERS Safety Report 22158600 (Version 3)
Quarter: 2023Q4

REPORT INFORMATION
  Report Type: Spontaneous
  Country: US (occurrence: US)
  Receive Date: 20230331
  Receipt Date: 20231120
  Transmission Date: 20240110
  Serious: Yes (Other)
  Sender: FDA-Public Use
  Company Number: US-CHEPLA-2023004020

PATIENT
  Sex: Female
  Weight: 78 kg

DRUGS (44)
  1. HYDROXYUREA [Suspect]
     Active Substance: HYDROXYUREA
     Indication: Product used for unknown indication
     Dates: start: 2020, end: 2021
  2. HYDROXYUREA [Suspect]
     Active Substance: HYDROXYUREA
     Indication: Product used for unknown indication
     Dates: start: 202204
  3. HYDROXYUREA [Suspect]
     Active Substance: HYDROXYUREA
     Indication: Product used for unknown indication
     Dates: start: 202304, end: 2023
  4. PEGASYS [Suspect]
     Active Substance: PEGINTERFERON ALFA-2A
     Indication: Neoplasm malignant
     Dates: start: 201908, end: 201908
  5. PEGASYS [Suspect]
     Active Substance: PEGINTERFERON ALFA-2A
     Indication: Polycythaemia
     Dates: start: 201908, end: 201908
  6. PEGASYS [Suspect]
     Active Substance: PEGINTERFERON ALFA-2A
     Indication: Neoplasm malignant
     Dosage: 2X/MONTH
     Dates: start: 202006, end: 2023
  7. PEGASYS [Suspect]
     Active Substance: PEGINTERFERON ALFA-2A
     Indication: Polycythaemia
     Dosage: 2X/MONTH
     Dates: start: 202006, end: 2023
  8. PEGASYS [Suspect]
     Active Substance: PEGINTERFERON ALFA-2A
     Indication: Neoplasm malignant
     Dosage: 2X/MONTH
     Dates: start: 20230405
  9. PEGASYS [Suspect]
     Active Substance: PEGINTERFERON ALFA-2A
     Indication: Polycythaemia
     Dosage: 2X/MONTH
     Dates: start: 20230405
  10. PEGASYS [Suspect]
     Active Substance: PEGINTERFERON ALFA-2A
     Indication: Neoplasm malignant
     Dosage: 2X/MONTH
     Dates: start: 20230912, end: 20231010
  11. PEGASYS [Suspect]
     Active Substance: PEGINTERFERON ALFA-2A
     Indication: Polycythaemia
     Dosage: 2X/MONTH
     Dates: start: 20230912, end: 20231010
  12. PEGASYS [Suspect]
     Active Substance: PEGINTERFERON ALFA-2A
     Indication: Neoplasm malignant
     Dosage: 2X/MONTH
     Dates: end: 202004
  13. PEGASYS [Suspect]
     Active Substance: PEGINTERFERON ALFA-2A
     Indication: Polycythaemia
     Dosage: 2X/MONTH
     Dates: end: 202004
  14. ATORVASTATIN [Suspect]
     Active Substance: ATORVASTATIN
     Dates: end: 2023
  15. JAKAFI [Suspect]
     Active Substance: RUXOLITINIB
     Indication: Neoplasm malignant
     Dates: start: 201908, end: 202002
  16. JAKAFI [Suspect]
     Active Substance: RUXOLITINIB
     Indication: Polycythaemia
     Dates: start: 201908, end: 202002
  17. JAKAFI [Suspect]
     Active Substance: RUXOLITINIB
     Indication: Neoplasm malignant
     Dates: start: 202205, end: 202208
  18. JAKAFI [Suspect]
     Active Substance: RUXOLITINIB
     Indication: Polycythaemia
     Dates: start: 202205, end: 202208
  19. JAKAFI [Suspect]
     Active Substance: RUXOLITINIB
     Indication: Neoplasm malignant
     Dates: start: 2023, end: 202304
  20. JAKAFI [Suspect]
     Active Substance: RUXOLITINIB
     Indication: Polycythaemia
     Dates: start: 2023, end: 202304
  21. JAKAFI [Suspect]
     Active Substance: RUXOLITINIB
     Indication: Neoplasm malignant
     Dates: start: 2023
  22. JAKAFI [Suspect]
     Active Substance: RUXOLITINIB
     Indication: Polycythaemia
     Dates: start: 2023
  23. ALLOPURINOL [Concomitant]
     Active Substance: ALLOPURINOL
  24. CARVEDILOL [Concomitant]
     Active Substance: CARVEDILOL
  25. IRBESARTAN [Concomitant]
     Active Substance: IRBESARTAN
  26. LEVOTHYROXINE [Concomitant]
     Active Substance: LEVOTHYROXINE
  27. PANTOPRAZOLE [Concomitant]
     Active Substance: PANTOPRAZOLE
  28. SERTRALINE [Concomitant]
     Active Substance: SERTRALINE HYDROCHLORIDE
  29. TAMSULOSIN [Concomitant]
     Active Substance: TAMSULOSIN
  30. VALACYCLOVIR [Concomitant]
     Active Substance: VALACYCLOVIR HYDROCHLORIDE
  31. ALPRAZOLAM [Concomitant]
     Active Substance: ALPRAZOLAM
     Dosage: AS NEEDED
  32. CLONIDINE HYDROCHLORIDE [Concomitant]
     Active Substance: CLONIDINE HYDROCHLORIDE
  33. VITAMIN B1 [Concomitant]
     Active Substance: THIAMINE HYDROCHLORIDE
  34. VITAMIN B6 [Concomitant]
     Active Substance: PYRIDOXINE HYDROCHLORIDE
  35. VITAMIN C [Concomitant]
     Active Substance: ASCORBIC ACID
  36. VITAMIN D3 [Concomitant]
     Active Substance: CHOLECALCIFEROL
  37. COENZYME Q10 [Concomitant]
     Active Substance: DIETARY SUPPLEMENT\UBIDECARENONE
  38. MIRALAX [Concomitant]
     Active Substance: POLYETHYLENE GLYCOL 3350
  39. Claritiin [Concomitant]
  40. XIIDRA [Concomitant]
     Active Substance: LIFITEGRAST
  41. ASPIRIN [Concomitant]
     Active Substance: ASPIRIN
  42. METAMUCIL [Concomitant]
     Active Substance: PLANTAGO SEED
     Indication: Pain
  43. OXYCODONE [Concomitant]
     Active Substance: OXYCODONE
     Indication: Pain
  44. INREBIC [Concomitant]
     Active Substance: FEDRATINIB HYDROCHLORIDE
     Dates: start: 20230912

REACTIONS (10)
  - Bone pain [Recovered/Resolved]
  - Bone pain [Unknown]
  - Rash [Unknown]
  - Pruritus [Unknown]
  - Burning sensation [Unknown]
  - Neuropathy peripheral [Unknown]
  - Malaise [Not Recovered/Not Resolved]
  - Pruritus [Unknown]
  - Aspartate aminotransferase [Not Recovered/Not Resolved]
  - Alanine aminotransferase [Not Recovered/Not Resolved]

NARRATIVE: CASE EVENT DATE: 20210101
